FAERS Safety Report 5939750-4 (Version None)
Quarter: 2008Q4

REPORT INFORMATION
  Report Type: 
  Country: None (occurrence: None)
  Receive Date: 20081031
  Receipt Date: 20081031
  Transmission Date: 20090506
  Serious: Yes (Life-Threatening, Disabling, Other)
  Sender: FDA-Public Use
  Company Number: None

PATIENT
  Age: 53 Year
  Sex: Male
  Weight: 118.3888 kg

DRUGS (2)
  1. NAPROXEN [Suspect]
     Indication: PAIN
     Dosage: 550MG 2 PO
     Route: 048
     Dates: start: 20071101, end: 20081021
  2. NAPROXEN [Suspect]
     Indication: SWELLING
     Dosage: 550MG 2 PO
     Route: 048
     Dates: start: 20071101, end: 20081021

REACTIONS (3)
  - HYPERTENSION [None]
  - OEDEMA PERIPHERAL [None]
  - WEIGHT INCREASED [None]
